FAERS Safety Report 11443135 (Version 2)
Quarter: 2015Q4

REPORT INFORMATION
  Report Type: Spontaneous
  Country: US (occurrence: US)
  Receive Date: 20150901
  Receipt Date: 20151120
  Transmission Date: 20160304
  Serious: Yes (Hospitalization, Disabling)
  Sender: FDA-Public Use
  Company Number: US-ENDO PHARMACEUTICALS INC.-2015-002580

PATIENT
  Age: 41 Year
  Sex: Male
  Weight: 99.88 kg

DRUGS (3)
  1. TESTIM [Suspect]
     Active Substance: TESTOSTERONE
     Indication: ANDROGEN REPLACEMENT THERAPY
     Dosage: ^AS PRESCRIBED^
     Route: 062
     Dates: start: 2008, end: 2009
  2. ANDROGEL [Suspect]
     Active Substance: TESTOSTERONE
     Indication: ANDROGEN REPLACEMENT THERAPY
     Dosage: ^AS PRESCRIBED^
     Route: 065
     Dates: start: 2009, end: 2009
  3. DEPO-TESTOSTERONE [Suspect]
     Active Substance: TESTOSTERONE CYPIONATE
     Indication: ANDROGEN REPLACEMENT THERAPY
     Dosage: ^AS PRESCRIBED^
     Route: 065
     Dates: start: 2007, end: 2009

REACTIONS (6)
  - Haemorrhagic anaemia [Unknown]
  - Acute myocardial infarction [Not Recovered/Not Resolved]
  - Quality of life decreased [Unknown]
  - Anxiety [Unknown]
  - Pain [Unknown]
  - Dyslipidaemia [Unknown]

NARRATIVE: CASE EVENT DATE: 20090915
